FAERS Safety Report 11271391 (Version 1)
Quarter: 2015Q3

REPORT INFORMATION
  Report Type: Report from Study
  Country: FR (occurrence: FR)
  Receive Date: 20150714
  Receipt Date: 20150714
  Transmission Date: 20151125
  Serious: Yes (Death, Life-Threatening, Hospitalization, Other)
  Sender: FDA-Public Use
  Company Number: FR-009507513-1202USA00964

PATIENT
  Age: 65 Year
  Sex: Male

DRUGS (13)
  1. HYPERIUM [Suspect]
     Active Substance: RILMENIDINE PHOSPHATE
     Indication: HYPERTENSION
     Dosage: 1 MG, QD
     Route: 065
     Dates: start: 201009
  2. LANSOPRAZOLE. [Suspect]
     Active Substance: LANSOPRAZOLE
     Route: 048
     Dates: start: 201009
  3. LOVENOX [Suspect]
     Active Substance: ENOXAPARIN SODIUM
     Dosage: 4000 IU ANTI-XA/4ML
     Route: 058
     Dates: start: 20111107, end: 20111125
  4. CONTRAMAL [Concomitant]
     Active Substance: TRAMADOL HYDROCHLORIDE
     Indication: PAIN
     Dosage: UNK UNK, PRN
  5. MOVICOL [Concomitant]
     Active Substance: POLYETHYLENE GLYCOL 3350\POTASSIUM CHLORIDE\SODIUM BICARBONATE\SODIUM CHLORIDE
     Indication: CONSTIPATION
     Dosage: UNK UNK, PRN
  6. SUTENT [Suspect]
     Active Substance: SUNITINIB MALATE
     Indication: METASTATIC RENAL CELL CARCINOMA
     Dosage: 50 MG, QD, CYCLIC, COURSES OF 28 DAYS EACH, FOLLOWED BY 14 DAYS WASH OUT
     Route: 048
     Dates: start: 20101020, end: 20111213
  7. SYMBICORT [Suspect]
     Active Substance: BUDESONIDE\FORMOTEROL FUMARATE DIHYDRATE
     Indication: CHRONIC OBSTRUCTIVE PULMONARY DISEASE
     Route: 055
     Dates: start: 201009
  8. DIFFU-K [Concomitant]
     Active Substance: POTASSIUM CHLORIDE
  9. SPASFON-LYOC [Concomitant]
     Active Substance: PHLOROGLUCINOL
     Indication: PAIN
     Dosage: UNK UNK, PRN
  10. ACETAMINOPHEN. [Concomitant]
     Active Substance: ACETAMINOPHEN
     Indication: PAIN
     Dosage: AS NEEDED
  11. FORTZAAR 100 MG/25 MG, COMPRIM? PELLICUL? [Suspect]
     Active Substance: HYDROCHLOROTHIAZIDE\LOSARTAN POTASSIUM
     Indication: HYPERTENSION
     Dosage: UNK
     Route: 048
     Dates: start: 201102
  12. AMLOR [Suspect]
     Active Substance: AMLODIPINE BESYLATE
     Dosage: 5 MG, QD
     Route: 048
     Dates: start: 201012
  13. HYZAAR [Suspect]
     Active Substance: HYDROCHLOROTHIAZIDE\LOSARTAN POTASSIUM
     Indication: HYPERTENSION
     Dosage: UNK
     Route: 048
     Dates: start: 201009, end: 201102

REACTIONS (20)
  - Mesenteric artery thrombosis [Unknown]
  - Metastases to muscle [Unknown]
  - Multi-organ failure [Unknown]
  - Intestinal ischaemia [Unknown]
  - Malaise [Unknown]
  - Necrosis [Unknown]
  - Pulmonary mass [Unknown]
  - Diaphragmatic hernia [Unknown]
  - Haemorrhage [Unknown]
  - Cardiac disorder [Unknown]
  - Aortic dissection [Fatal]
  - Pneumatosis [Unknown]
  - Peritoneal perforation [Unknown]
  - Pericardial haemorrhage [Unknown]
  - Renal ischaemia [Unknown]
  - Peripheral artery thrombosis [Unknown]
  - Venous thrombosis limb [Unknown]
  - Peripheral ischaemia [Unknown]
  - Renal artery thrombosis [Unknown]
  - Chest pain [Unknown]

NARRATIVE: CASE EVENT DATE: 201112
